FAERS Safety Report 5779346-0 (Version None)
Quarter: 2008Q2

REPORT INFORMATION
  Report Type: 
  Country: None (occurrence: None)
  Receive Date: 20080619
  Receipt Date: 20080618
  Transmission Date: 20081010
  Serious: Yes (Death)
  Sender: FDA-Public Use
  Company Number: US-BOEHRINGER INGELHEIM GMBH, GERMANY-2008-BP-07439BP

PATIENT
  Sex: Female
  Weight: 47 kg

DRUGS (9)
  1. ATROVENT HFA [Suspect]
     Indication: CHRONIC OBSTRUCTIVE PULMONARY DISEASE
     Route: 055
     Dates: start: 20080510, end: 20080510
  2. DILANTIN [Concomitant]
     Indication: CONVULSION
     Dates: start: 20071201
  3. ASPIRIN [Concomitant]
  4. MULTI-VITAMIN [Concomitant]
  5. VITAMIN B1 TAB [Concomitant]
  6. PHENYTOIN [Concomitant]
     Dates: start: 20080205
  7. ALBUTEROL [Concomitant]
     Dates: start: 20080205
  8. THIAMINE [Concomitant]
     Dates: start: 20080205
  9. FOLIC ACID [Concomitant]
     Dates: start: 20080205

REACTIONS (3)
  - CONVULSION [None]
  - DEATH [None]
  - DYSPNOEA [None]
